FAERS Safety Report 10174825 (Version 1)
Quarter: 2014Q2

REPORT INFORMATION
  Report Type: Spontaneous
  Country: US (occurrence: US)
  Receive Date: 20140515
  Receipt Date: 20140515
  Transmission Date: 20141212
  Serious: Yes (Other)
  Sender: FDA-Public Use
  Company Number: US-IAC KOREA XML-USA-2014-0113851

PATIENT
  Sex: Male
  Weight: 70.75 kg

DRUGS (8)
  1. MS CONTIN TABLETS [Suspect]
     Indication: PAIN
     Dosage: UNKNOWN
     Route: 048
  2. OXYCODONE HYDROCHLORIDE (SIMILAR TO NDA 22-272) [Suspect]
     Indication: PAIN
     Dosage: UNKNOWN
     Route: 048
  3. CELEBREX [Suspect]
     Indication: PAIN
     Dosage: UNKNOWN
     Route: 048
  4. CELEBREX [Suspect]
     Indication: PROSTATITIS
  5. LYRICA [Suspect]
     Indication: PAIN
     Dosage: UNKNOWN
     Route: 048
  6. LYRICA [Suspect]
     Indication: NEUROPATHY PERIPHERAL
  7. FENTANYL                           /00174602/ [Suspect]
     Indication: PAIN
     Dosage: UNKNOWN
     Route: 048
  8. VALIUM                             /00017001/ [Concomitant]
     Indication: PRODUCT USED FOR UNKNOWN INDICATION
     Dosage: 5 MG, UNK
     Route: 048

REACTIONS (2)
  - Neuroendocrine carcinoma [Unknown]
  - Intervertebral disc degeneration [Unknown]
